FAERS Safety Report 5653735-7 (Version None)
Quarter: 2008Q1

REPORT INFORMATION
  Report Type: 
  Country: None (occurrence: None)
  Receive Date: 20080204
  Receipt Date: 20071024
  Transmission Date: 20080703
  Serious: Yes (Hospitalization)
  Sender: FDA-Public Use
  Company Number: PHEH2007US14007

PATIENT
  Age: 72 Year
  Sex: Female

DRUGS (1)
  1. RITALIN [Suspect]
     Indication: NARCOLEPSY

REACTIONS (2)
  - DRUG INEFFECTIVE [None]
  - HALLUCINATION [None]
